FAERS Safety Report 8965584 (Version 1)
Quarter: 2012Q4

REPORT INFORMATION
  Report Type: Spontaneous
  Country: GB (occurrence: None)
  Receive Date: 20121205
  Receipt Date: 20121205
  Transmission Date: 20130627
  Serious: Yes (Other)
  Sender: FDA-Public Use
  Company Number: AUR-APL-2012-05143

PATIENT
  Age: 76 Year
  Sex: Male

DRUGS (3)
  1. LEVETIRACETAM [Suspect]
     Indication: POST-TRAUMATIC EPILEPSY
  2. VALPROATE SODIUM [Concomitant]
  3. CLOBAZAM [Concomitant]

REACTIONS (12)
  - Confusional state [None]
  - Restlessness [None]
  - Circadian rhythm sleep disorder [None]
  - Cognitive disorder [None]
  - Fatigue [None]
  - Disorientation [None]
  - Aphasia [None]
  - Insomnia [None]
  - Restlessness [None]
  - Agitation [None]
  - Aggression [None]
  - Hyponatraemia [None]
